FAERS Safety Report 9731602 (Version 1)
Quarter: 2013Q4

REPORT INFORMATION
  Report Type: Report from Study
  Country: BR (occurrence: BR)
  Receive Date: 20131205
  Receipt Date: 20131205
  Transmission Date: 20140711
  Serious: Yes (Hospitalization)
  Sender: FDA-Public Use
  Company Number: BR-ROCHE-1310944

PATIENT
  Sex: Female
  Weight: 65 kg

DRUGS (6)
  1. ACTEMRA [Suspect]
     Indication: RHEUMATOID ARTHRITIS
     Route: 065
     Dates: start: 20120301
  2. LOSARTAN [Concomitant]
  3. HYDROCHLOROTHIAZIDE [Concomitant]
  4. PRELONE [Concomitant]
  5. RANITIDINE [Concomitant]
  6. CODEINE [Concomitant]

REACTIONS (3)
  - Neuritis [Unknown]
  - Joint lock [Unknown]
  - Gait disturbance [Unknown]
